FAERS Safety Report 9665684 (Version 1)
Quarter: 2013Q4

REPORT INFORMATION
  Report Type: Spontaneous
  Country: US (occurrence: None)
  Receive Date: 20131031
  Receipt Date: 20131031
  Transmission Date: 20140711
  Serious: Yes (Hospitalization)
  Sender: FDA-Public Use
  Company Number: None

PATIENT
  Age: 88 Year
  Sex: Female
  Weight: 71 kg

DRUGS (2)
  1. ASPIRIN [Suspect]
     Route: 048
     Dates: end: 20110823
  2. CLOPIDOGREL [Suspect]
     Route: 048
     Dates: end: 20110823

REACTIONS (3)
  - Haematemesis [None]
  - Haemoglobin decreased [None]
  - Gastric lavage abnormal [None]
